FAERS Safety Report 14915416 (Version 2)
Quarter: 2018Q3

REPORT INFORMATION
  Report Type: Spontaneous
  Country: JP (occurrence: JP)
  Receive Date: 20180518
  Receipt Date: 20180731
  Transmission Date: 20181010
  Serious: No
  Sender: FDA-Public Use
  Company Number: JP-AMGEN-JPNSP2018068401

PATIENT

DRUGS (1)
  1. G?LASTA [Suspect]
     Active Substance: PEGFILGRASTIM
     Indication: PRODUCT USED FOR UNKNOWN INDICATION
     Dosage: UNK
     Route: 058

REACTIONS (5)
  - Off label use [Unknown]
  - Hepatic function abnormal [Unknown]
  - Therapeutic procedure [Unknown]
  - Platelet count decreased [Unknown]
  - Pain [Unknown]
